FAERS Safety Report 16940271 (Version 5)
Quarter: 2019Q4

REPORT INFORMATION
  Report Type: Report from Study
  Country: US (occurrence: US)
  Receive Date: 20191021
  Receipt Date: 20191204
  Transmission Date: 20200122
  Serious: Yes (Life-Threatening, Hospitalization)
  Sender: FDA-Public Use
  Company Number: US-ROCHE-2445163

PATIENT
  Age: 65 Year
  Sex: Female
  Weight: 69.4 kg

DRUGS (9)
  1. GEMCITABINE. [Suspect]
     Active Substance: GEMCITABINE
     Indication: ADENOCARCINOMA PANCREAS
     Dosage: ON DAY 1, 8 AND 15 OF EACH 28 DAY CYCLE. DATE OF MOST RECENT DOSE 09/OCT/2019
     Route: 042
     Dates: start: 20191009
  2. OMEPRAZOLE. [Concomitant]
     Active Substance: OMEPRAZOLE
     Indication: PROPHYLAXIS
     Route: 065
     Dates: start: 20190916
  3. LACTULOSE. [Concomitant]
     Active Substance: LACTULOSE
     Route: 065
     Dates: start: 20191009
  4. ATEZOLIZUMAB. [Suspect]
     Active Substance: ATEZOLIZUMAB
     Indication: ADENOCARCINOMA PANCREAS
     Dosage: DATE OF MOST RECENT DOSE 09/OCT/2019
     Route: 042
     Dates: start: 20191009
  5. NAB-PACLITAXEL [Suspect]
     Active Substance: PACLITAXEL
     Indication: ADENOCARCINOMA PANCREAS
     Dosage: ON DAYS 1, 8 AND 15 OF EACH 28 DAY CYCLE. DATE OF MOST RECENT DOSE 09/OCT/2019
     Route: 042
     Dates: start: 20191009
  6. RO7009789 (CD40 AGONIST) [Suspect]
     Active Substance: SELICRELUMAB
     Indication: ADENOCARCINOMA PANCREAS
     Dosage: ON DAY 1 OF CYCLES 1 TO 4 AND EVERY THIRD CYCLE THEREAFTER (I.E., 7, 10, 13, ETC.).DATE OF MOST RECE
     Route: 058
     Dates: start: 20191009
  7. DOCUSATE SODIUM. [Concomitant]
     Active Substance: DOCUSATE SODIUM
     Route: 065
     Dates: start: 20190915
  8. OXYCODONE [Concomitant]
     Active Substance: OXYCODONE
  9. RIVAROXABAN [Concomitant]
     Active Substance: RIVAROXABAN
     Route: 065
     Dates: start: 20191016

REACTIONS (1)
  - Pyrexia [Recovered/Resolved]

NARRATIVE: CASE EVENT DATE: 20191011
